FAERS Safety Report 20845936 (Version 1)
Quarter: 2022Q2

REPORT INFORMATION
  Report Type: Spontaneous
  Country: US (occurrence: US)
  Receive Date: 20220518
  Receipt Date: 20220518
  Transmission Date: 20220721
  Serious: No
  Sender: FDA-Public Use
  Company Number: US-PFIZER INC-202200505872

PATIENT
  Age: 32 Year
  Sex: Female

DRUGS (1)
  1. SOLU-MEDROL [Suspect]
     Active Substance: METHYLPREDNISOLONE SODIUM SUCCINATE
     Dosage: UNK (ADMINISTERED SOLU-MEDROL IN HER ARM IN THE DELTOID MUSCLE)
     Route: 030

REACTIONS (3)
  - Wrong technique in product usage process [Unknown]
  - Pain in extremity [Unknown]
  - Movement disorder [Unknown]
